FAERS Safety Report 4831649-X (Version None)
Quarter: 2005Q4

REPORT INFORMATION
  Report Type: 
  Country: None (occurrence: None)
  Receive Date: 20051116
  Receipt Date: 20051105
  Transmission Date: 20060501
  Serious: Yes (Other)
  Sender: FDA-Public Use
  Company Number: 2005086813

PATIENT
  Age: 75 Year
  Sex: Female
  Weight: 78.4723 kg

DRUGS (15)
  1. LIPITOR [Suspect]
     Indication: BLOOD CHOLESTEROL INCREASED
     Dosage: 20 MG (20 MG, 1 IN 1 D), ORAL
     Route: 048
     Dates: start: 19990101
  2. XALATAN [Suspect]
     Indication: GLAUCOMA
     Dosage: INTRAOCULAR
     Route: 031
  3. THROAT PREPARATIONS (THROAT PREPARATIONS) [Suspect]
     Indication: ILL-DEFINED DISORDER
     Dosage: ORAL
     Route: 048
  4. ZOLOFT [Concomitant]
  5. CARTIA XT [Concomitant]
  6. SPIRONOLACTONE W/HYDROCHLOROTHIAZIDE (HYDROCHLOROTHIAZIDE, SPIRONOLACT [Concomitant]
  7. LEVOXYL [Concomitant]
  8. ALBUTEROL [Concomitant]
  9. CLIMARA [Concomitant]
  10. METROGEL [Concomitant]
  11. ASTELIN [Concomitant]
  12. ACETAMINOPHEN [Concomitant]
  13. TYLENOL [Concomitant]
  14. CLONAZEPAM [Concomitant]
  15. ACETYLSALICYLIC ACID SRT [Concomitant]

REACTIONS (8)
  - ARTHRALGIA [None]
  - FALL [None]
  - GLAUCOMA [None]
  - MENIERE'S DISEASE [None]
  - MYALGIA [None]
  - PAIN IN EXTREMITY [None]
  - PHARMACEUTICAL PRODUCT COMPLAINT [None]
  - PHARYNGOLARYNGEAL PAIN [None]
